FAERS Safety Report 22071784 (Version 1)
Quarter: 2023Q1

REPORT INFORMATION
  Report Type: Spontaneous
  Country: AT (occurrence: AT)
  Receive Date: 20230307
  Receipt Date: 20230307
  Transmission Date: 20230418
  Serious: Yes (Other)
  Sender: FDA-Public Use
  Company Number: None

PATIENT
  Age: 75 Year
  Sex: Female
  Weight: 50 kg

DRUGS (3)
  1. BEMPEDOIC ACID [Suspect]
     Active Substance: BEMPEDOIC ACID
     Indication: Product used for unknown indication
     Dosage: UNK
     Route: 065
     Dates: start: 202207, end: 202301
  2. PRALUENT [Suspect]
     Active Substance: ALIROCUMAB
     Indication: Low density lipoprotein increased
     Dosage: 1 DF, ONCE EVERY 2 WK
     Route: 065
     Dates: start: 202207, end: 202301
  3. PRALUENT [Suspect]
     Active Substance: ALIROCUMAB
     Dosage: UNK REDUCED DOSE
     Route: 065

REACTIONS (8)
  - Respiratory distress [Recovering/Resolving]
  - Tendon pain [Recovering/Resolving]
  - Cardiac discomfort [Recovering/Resolving]
  - Bone pain [Recovering/Resolving]
  - Rhinorrhoea [Recovering/Resolving]
  - Sneezing [Recovering/Resolving]
  - Myalgia [Recovering/Resolving]
  - Pruritus [Recovering/Resolving]

NARRATIVE: CASE EVENT DATE: 20220901
